FAERS Safety Report 9296205 (Version 1)
Quarter: 2013Q2

REPORT INFORMATION
  Report Type: Spontaneous
  Country: GB (occurrence: None)
  Receive Date: 20130514
  Receipt Date: 20130514
  Transmission Date: 20140414
  Serious: Yes (Other)
  Sender: FDA-Public Use
  Company Number: USA/UKI/13/0029431

PATIENT
  Age: 24 Year
  Sex: Female

DRUGS (4)
  1. OLANZAPINE (OLANZAPINE) [Suspect]
     Indication: BIPOLAR I DISORDER
  2. LITHIUM [Suspect]
     Indication: BIPOLAR DISORDER
  3. PROMETHAZINE [Concomitant]
  4. DIAZEPAM [Concomitant]

REACTIONS (6)
  - Treatment noncompliance [None]
  - Mania [None]
  - Small size placenta [None]
  - Caesarean section [None]
  - Blood glucose decreased [None]
  - Maternal drugs affecting foetus [None]
